FAERS Safety Report 8865847 (Version 1)
Quarter: 2012Q4

REPORT INFORMATION
  Report Type: 
  Country: IT (occurrence: IT)
  Receive Date: 20121025
  Receipt Date: 20121025
  Transmission Date: 20130627
  Serious: Yes (Hospitalization)
  Sender: FDA-Public Use
  Company Number: PHHY2012IT094018

PATIENT
  Age: 80 Year
  Sex: Male

DRUGS (8)
  1. AMLODIPINE BESYLATE [Suspect]
     Indication: HYPERTENSION
     Dosage: 10 mg, UNK
     Route: 048
     Dates: start: 20120101
  2. BISOPROLOL FUMARATE [Suspect]
     Indication: HYPERTENSION
     Dosage: 1.25 mg, UNK
     Route: 048
     Dates: start: 20120101
  3. RAMIPRIL [Suspect]
     Indication: HYPERTENSION
     Dosage: 2.5 mg, UNK
     Route: 048
     Dates: start: 20120101
  4. FUROSEMIDE [Suspect]
     Indication: HYPERTENSION
     Dosage: 25 mg, UNK
     Route: 048
     Dates: start: 20120101
  5. ALDACTONE [Suspect]
     Indication: HYPERTENSION
     Dosage: 3 DF, UNK
     Route: 048
     Dates: start: 20120101
  6. VENITRIN [Suspect]
     Indication: MYOCARDIAL ISCHAEMIA
     Dosage: 1 DF (1 transdermal patch)
     Route: 062
     Dates: start: 20120101
  7. COUMADIN [Concomitant]
     Indication: ATRIAL FIBRILLATION
     Route: 048
  8. LANOXIN [Concomitant]
     Indication: ATRIAL FIBRILLATION
     Route: 048

REACTIONS (3)
  - Syncope [Recovered/Resolved]
  - Hypotension [Recovered/Resolved]
  - Loss of consciousness [Recovered/Resolved]
